FAERS Safety Report 9413652 (Version 4)
Quarter: 2014Q1

REPORT INFORMATION
  Report Type: Spontaneous
  Country: US (occurrence: US)
  Receive Date: 20130722
  Receipt Date: 20140122
  Transmission Date: 20141002
  Serious: Yes (Hospitalization, Other)
  Sender: FDA-Public Use
  Company Number: US-RB-049465-13

PATIENT
  Sex: Male

DRUGS (7)
  1. SUBUTEX [Suspect]
     Indication: PAIN
     Route: 060
  2. SUBOXONE TABLET [Suspect]
     Indication: PAIN
     Dosage: SELF TAPERING FROM 32 TO 16 MG DAILY
     Route: 060
     Dates: start: 2004, end: 2010
  3. SUBOXONE FILM [Suspect]
     Indication: PAIN
     Dosage: SUBOXONE FILM; SELF TAPERING FROM 32 TO 16 MG DAILY
     Route: 060
     Dates: start: 2010, end: 20130702
  4. KEPPRA [Concomitant]
     Indication: CONVULSION
     Dosage: DOSING DETAILS UNKNOWN
     Route: 048
  5. LAMICTAL [Concomitant]
     Indication: ANTIDEPRESSANT THERAPY
     Dosage: DOSING DETAILS UNKNOWN
     Route: 048
  6. ZOLOFT [Concomitant]
     Indication: ANTIINFLAMMATORY THERAPY
     Dosage: DOSING DETAILS UNKNOWN
     Route: 048
     Dates: end: 201311
  7. NAMENDA XR [Concomitant]
     Indication: MEMORY IMPAIRMENT
     Route: 048

REACTIONS (20)
  - Epilepsy [Recovered/Resolved]
  - Pulmonary oedema [Not Recovered/Not Resolved]
  - Arterial occlusive disease [Not Recovered/Not Resolved]
  - Chest pain [Not Recovered/Not Resolved]
  - Dyspnoea [Unknown]
  - Off label use [Recovered/Resolved]
  - Intentional underdose [Recovered/Resolved]
  - Chills [Not Recovered/Not Resolved]
  - Vomiting [Not Recovered/Not Resolved]
  - Asthenia [Not Recovered/Not Resolved]
  - Hypertension [Unknown]
  - Drug withdrawal syndrome [Not Recovered/Not Resolved]
  - Abdominal pain upper [Not Recovered/Not Resolved]
  - Paraesthesia [Not Recovered/Not Resolved]
  - Nephrolithiasis [Not Recovered/Not Resolved]
  - Dizziness [Not Recovered/Not Resolved]
  - Palpitations [Not Recovered/Not Resolved]
  - Hyperhidrosis [Not Recovered/Not Resolved]
  - Tremor [Not Recovered/Not Resolved]
  - Abdominal discomfort [Not Recovered/Not Resolved]
